FAERS Safety Report 22091561 (Version 1)
Quarter: 2023Q1

REPORT INFORMATION
  Report Type: Spontaneous
  Country: US (occurrence: US)
  Receive Date: 20230314
  Receipt Date: 20230314
  Transmission Date: 20230417
  Serious: Yes (Death, Other)
  Sender: FDA-Public Use
  Company Number: US-BIOVITRUM-2023-US-006648

PATIENT
  Age: 1 Year
  Sex: Male

DRUGS (2)
  1. SYNAGIS [Suspect]
     Active Substance: PALIVIZUMAB
     Indication: Antiviral prophylaxis
     Dosage: SYNAGIS SOLN (50MG/0.5ML)
     Route: 030
     Dates: start: 202202
  2. SYNAGIS [Suspect]
     Active Substance: PALIVIZUMAB
     Dosage: SYNAGIS SOLN (50MG/0.5ML)
     Route: 030
     Dates: start: 202109

REACTIONS (1)
  - Septic shock [Fatal]
